FAERS Safety Report 5815582-2 (Version None)
Quarter: 2008Q3

REPORT INFORMATION
  Report Type: 
  Country: None (occurrence: None)
  Receive Date: 20080718
  Receipt Date: 20080711
  Transmission Date: 20090109
  Serious: Yes (Disabling, Other)
  Sender: FDA-Public Use
  Company Number: US-AMGEN-STX294034

PATIENT
  Age: 58 Year
  Sex: Female

DRUGS (2)
  1. ENBREL [Suspect]
     Indication: RHEUMATOID ARTHRITIS
     Route: 058
  2. METHOTREXATE [Concomitant]
     Route: 065

REACTIONS (8)
  - ANTINUCLEAR ANTIBODY POSITIVE [None]
  - CENTRAL NERVOUS SYSTEM LESION [None]
  - DOUBLE STRANDED DNA ANTIBODY [None]
  - LUPUS-LIKE SYNDROME [None]
  - MENTAL STATUS CHANGES [None]
  - NON-HODGKIN'S LYMPHOMA [None]
  - PANCYTOPENIA [None]
  - SPEECH DISORDER [None]
